FAERS Safety Report 12372926 (Version 1)
Quarter: 2016Q2

REPORT INFORMATION
  Report Type: Spontaneous
  Country: US (occurrence: US)
  Receive Date: 20160516
  Receipt Date: 20160516
  Transmission Date: 20160815
  Serious: Yes (Other)
  Sender: FDA-Public Use
  Company Number: US-MDT-ADR-2016-00016

PATIENT
  Age: 25 Year
  Sex: Female

DRUGS (5)
  1. VALIUM [Suspect]
     Active Substance: DIAZEPAM
  2. MIRALAX [Suspect]
     Active Substance: POLYETHYLENE GLYCOL 3350
  3. BACLOFEN. [Suspect]
     Active Substance: BACLOFEN
     Dosage: 600.8MCG/DAY
     Route: 037
  4. TRILEPTAL [Suspect]
     Active Substance: OXCARBAZEPINE
  5. CLONIDINE. [Suspect]
     Active Substance: CLONIDINE
     Dosage: 4.506/DAY
     Route: 037

REACTIONS (4)
  - Culture tissue specimen positive [Unknown]
  - Unevaluable event [Unknown]
  - Staphylococcus test positive [Unknown]
  - Medical device site infection [Unknown]

NARRATIVE: CASE EVENT DATE: 2015
